FAERS Safety Report 20127995 (Version 1)
Quarter: 2021Q4

REPORT INFORMATION
  Report Type: Spontaneous
  Country: US (occurrence: None)
  Receive Date: 20211129
  Receipt Date: 20211129
  Transmission Date: 20220304
  Serious: No
  Sender: FDA-Public Use
  Company Number: US-ROCHE-2691590

PATIENT
  Sex: Female
  Weight: 94.886 kg

DRUGS (6)
  1. HERCEPTIN [Suspect]
     Active Substance: TRASTUZUMAB
     Indication: Metastases to bone
     Dosage: INFUSE, ONGOING:YES
     Route: 042
     Dates: start: 20180118
  2. HERCEPTIN [Suspect]
     Active Substance: TRASTUZUMAB
     Dosage: ONGOING: UNKNOWN
     Route: 042
     Dates: start: 20180907
  3. FASLODEX [Concomitant]
     Active Substance: FULVESTRANT
  4. GABAPENTIN [Concomitant]
     Active Substance: GABAPENTIN
  5. LEXAPRO [Concomitant]
     Active Substance: ESCITALOPRAM OXALATE
  6. XGEVA [Concomitant]
     Active Substance: DENOSUMAB

REACTIONS (3)
  - Intentional product use issue [Unknown]
  - Off label use [Unknown]
  - No adverse event [Unknown]
